FAERS Safety Report 6562364-2 (Version None)
Quarter: 2010Q1

REPORT INFORMATION
  Report Type: 
  Country: None (occurrence: None)
  Receive Date: 20100130
  Receipt Date: 20091111
  Transmission Date: 20100710
  Serious: No
  Sender: FDA-Public Use
  Company Number: US-ABBOTT-09P-163-0608107-00

PATIENT
  Sex: Female
  Weight: 109.41 kg

DRUGS (1)
  1. HUMIRA [Suspect]
     Indication: RHEUMATOID ARTHRITIS
     Dates: start: 20080701

REACTIONS (3)
  - PARAESTHESIA [None]
  - PARAESTHESIA ORAL [None]
  - RASH PRURITIC [None]
